FAERS Safety Report 13631595 (Version 2)
Quarter: 2017Q2

REPORT INFORMATION
  Report Type: Spontaneous
  Country: FR (occurrence: FR)
  Receive Date: 20170608
  Receipt Date: 20170623
  Transmission Date: 20170830
  Serious: Yes (Death, Hospitalization, Other)
  Sender: FDA-Public Use
  Company Number: FR-BAYER-2017-102309

PATIENT
  Age: 64 Year
  Sex: Female

DRUGS (2)
  1. STIVARGA [Suspect]
     Active Substance: REGORAFENIB
     Dosage: 4 TABLETS PER DAY
  2. STIVARGA [Suspect]
     Active Substance: REGORAFENIB
     Dosage: 2 TABLETS PER DAY
     Dates: start: 201603

REACTIONS (6)
  - Pain [None]
  - Weight decreased [None]
  - Disease progression [Fatal]
  - General physical health deterioration [None]
  - Hepatic failure [None]
  - Asthenia [None]

NARRATIVE: CASE EVENT DATE: 201607
